FAERS Safety Report 7286404-0 (Version None)
Quarter: 2011Q1

REPORT INFORMATION
  Report Type: 
  Country: None (occurrence: None)
  Receive Date: 20110210
  Receipt Date: 20110129
  Transmission Date: 20110831
  Serious: Yes (Death, Hospitalization)
  Sender: FDA-Public Use
  Company Number: JP-ABBOTT-10P-087-0686351-00

PATIENT
  Age: 82 Year
  Sex: Male

DRUGS (7)
  1. MAGMITT [Concomitant]
     Indication: CONSTIPATION
     Route: 048
     Dates: end: 20090717
  2. CEROCRAL [Concomitant]
     Indication: CEREBRAL INFARCTION
     Route: 048
     Dates: start: 20081024, end: 20090717
  3. PURSENNID [Concomitant]
     Indication: CONSTIPATION
     Route: 048
  4. BICALUTAMIDE [Concomitant]
     Indication: PROSTATE CANCER STAGE II
     Route: 048
     Dates: start: 20090307, end: 20090630
  5. ESTRAMUSTINE PHOSPHATE SODIUM [Concomitant]
     Indication: PROSTATE CANCER STAGE II
     Route: 048
     Dates: start: 20090418, end: 20090615
  6. LEUPLIN SR FOR INJECTION 11.25 MG [Suspect]
     Indication: PROSTATE CANCER STAGE II
     Dates: start: 20080409, end: 20090601
  7. BUFFERIN [Concomitant]
     Indication: CEREBRAL INFARCTION
     Route: 048
     Dates: start: 20080829, end: 20090717

REACTIONS (3)
  - PROSTATE CANCER [None]
  - METASTATIC PAIN [None]
  - NAUSEA [None]
